FAERS Safety Report 7190224-5 (Version None)
Quarter: 2010Q4

REPORT INFORMATION
  Report Type: 
  Country: None (occurrence: None)
  Receive Date: 20101221
  Receipt Date: 20101221
  Transmission Date: 20110411
  Serious: No
  Sender: FDA-Public Use
  Company Number: None

PATIENT

DRUGS (5)
  1. CREST PRO HEALTH TOOTHPASTE [Suspect]
     Dates: start: 20101101
  2. ACCUFLORA [Concomitant]
  3. PENICILLIN VK [Concomitant]
  4. RINSE 1 PART HYROGEN PEROXIDE AND 2 PARTS WATER [Concomitant]
  5. BAKING SODA [Concomitant]

REACTIONS (5)
  - GINGIVAL BLEEDING [None]
  - GLOSSITIS [None]
  - ORAL DISCOMFORT [None]
  - ORAL MUCOSAL EXFOLIATION [None]
  - PERIODONTITIS [None]
